FAERS Safety Report 8081107-7 (Version None)
Quarter: 2012Q1

REPORT INFORMATION
  Report Type: 
  Country: None (occurrence: None)
  Receive Date: 20120130
  Receipt Date: 20091030
  Transmission Date: 20120608
  Serious: Yes (Hospitalization)
  Sender: FDA-Public Use
  Company Number: US-GLAXOSMITHKLINE-A0815639A

PATIENT
  Sex: Female
  Weight: 87.3 kg

DRUGS (8)
  1. ZOLOFT [Concomitant]
  2. NEXIUM [Concomitant]
  3. LIPITOR [Concomitant]
  4. AMARYL [Concomitant]
  5. INSULIN [Concomitant]
  6. METFFORMIN HYDROCHLORIDE [Concomitant]
  7. LISINOPRIL [Concomitant]
  8. AVANDIA [Suspect]
     Indication: DIABETES MELLITUS
     Dosage: 4MG PER DAY
     Route: 048
     Dates: end: 20070101

REACTIONS (2)
  - CARDIAC FAILURE CONGESTIVE [None]
  - CARDIOMYOPATHY [None]
